FAERS Safety Report 7780837-1 (Version None)
Quarter: 2011Q3

REPORT INFORMATION
  Report Type: 
  Country: None (occurrence: None)
  Receive Date: 20110927
  Receipt Date: 20110921
  Transmission Date: 20111222
  Serious: No
  Sender: FDA-Public Use
  Company Number: US-PFIZER INC-2011225847

PATIENT
  Sex: Male

DRUGS (3)
  1. METHADONE [Concomitant]
     Dosage: UNK
  2. LYRICA [Suspect]
     Dosage: 75 MG, 2X/DAY
     Route: 048
  3. PAXIL [Concomitant]
     Dosage: UNK

REACTIONS (1)
  - DRUG SCREEN POSITIVE [None]
